FAERS Safety Report 26115840 (Version 1)
Quarter: 2025Q4

REPORT INFORMATION
  Report Type: Report from Study
  Country: US (occurrence: US)
  Receive Date: 20251203
  Receipt Date: 20251203
  Transmission Date: 20260117
  Serious: Yes (Other)
  Sender: ALEXION PHARMACEUTICALS
  Company Number: US-ASTRAZENECA-202511NAM019341US

PATIENT
  Age: 54 Year
  Sex: Male

DRUGS (1)
  1. STRENSIQ [Suspect]
     Active Substance: ASFOTASE ALFA
     Indication: Phosphorus metabolism disorder
     Dosage: 158 MILLIGRAM, Q3W
     Route: 065

REACTIONS (9)
  - Blood urea increased [Unknown]
  - Blood creatinine increased [Unknown]
  - Urine albumin/creatinine ratio increased [Unknown]
  - Glomerular filtration rate decreased [Unknown]
  - Vitamin B6 increased [Unknown]
  - Blood parathyroid hormone increased [Unknown]
  - Blood phosphorus increased [Unknown]
  - Blood glucose increased [Unknown]
  - High density lipoprotein decreased [Unknown]
